FAERS Safety Report 5171289-9 (Version None)
Quarter: 2006Q4

REPORT INFORMATION
  Report Type: 
  Country: None (occurrence: None)
  Receive Date: 20061213
  Receipt Date: 20040109
  Transmission Date: 20070319
  Serious: Yes (Other)
  Sender: FDA-Public Use
  Company Number: US-AMGEN-US063802

PATIENT
  Sex: Female

DRUGS (3)
  1. ENBREL [Suspect]
     Indication: RHEUMATOID ARTHRITIS
     Route: 058
     Dates: start: 19981201, end: 20030701
  2. PLAQUENIL [Concomitant]
     Dates: start: 19971113
  3. ARAVA [Concomitant]
     Dates: start: 19990929

REACTIONS (1)
  - MULTIPLE SCLEROSIS [None]
